FAERS Safety Report 12892792 (Version 1)
Quarter: 2016Q4

REPORT INFORMATION
  Report Type: Spontaneous
  Country: CA (occurrence: US)
  Receive Date: 20161027
  Receipt Date: 20161027
  Transmission Date: 20170207
  Serious: Yes (Death)
  Sender: FDA-Public Use
  Company Number: None

PATIENT
  Age: 53 Year
  Sex: Male
  Weight: 93.8 kg

DRUGS (6)
  1. ACETAMINOPHEN. [Concomitant]
     Active Substance: ACETAMINOPHEN
  2. HYDROMORPHONE [Concomitant]
     Active Substance: HYDROMORPHONE
  3. HYDROMORPHONE CONTIN [Concomitant]
     Active Substance: HYDROMORPHONE HYDROCHLORIDE
  4. DOCUSATE SODIUM. [Concomitant]
     Active Substance: DOCUSATE SODIUM
  5. MEMANTINE HYDROCHLORIDE. [Suspect]
     Active Substance: MEMANTINE HYDROCHLORIDE
     Dates: end: 20160406
  6. TAMSULOSIN [Concomitant]
     Active Substance: TAMSULOSIN

REACTIONS (9)
  - Herpes virus infection [None]
  - Metastases to bone [None]
  - Ascites [None]
  - Metastases to liver [None]
  - Metastases to central nervous system [None]
  - Disease progression [None]
  - Metastases to lymph nodes [None]
  - Disease recurrence [None]
  - Adverse drug reaction [None]

NARRATIVE: CASE EVENT DATE: 20160505
